FAERS Safety Report 19555388 (Version 1)
Quarter: 2021Q3

REPORT INFORMATION
  Report Type: Spontaneous
  Country: US (occurrence: US)
  Receive Date: 20210715
  Receipt Date: 20210715
  Transmission Date: 20211014
  Serious: Yes (Life-Threatening, Hospitalization)
  Sender: FDA-Public Use
  Company Number: US-MYLANLABS-2021M1042160

PATIENT
  Age: 48 Year
  Sex: Female

DRUGS (4)
  1. METHADONE [Suspect]
     Active Substance: METHADONE HYDROCHLORIDE
     Indication: DRUG USE DISORDER
     Dosage: 30 MILLIGRAM, QD
     Route: 065
  2. NALOXONE [Suspect]
     Active Substance: NALOXONE
     Indication: RESPIRATORY FAILURE
     Dosage: UNK
     Route: 065
  3. METHADONE [Suspect]
     Active Substance: METHADONE HYDROCHLORIDE
     Dosage: ACCIDENTAL ADMINISTRATION OF HIGH DOSE
     Route: 065
  4. NALOXONE [Suspect]
     Active Substance: NALOXONE
     Indication: TOXICITY TO VARIOUS AGENTS

REACTIONS (15)
  - Stress cardiomyopathy [Recovering/Resolving]
  - Accidental overdose [Recovering/Resolving]
  - Normochromic normocytic anaemia [Recovering/Resolving]
  - Bradycardia [Recovering/Resolving]
  - Torsade de pointes [Recovering/Resolving]
  - Mental disorder [Recovering/Resolving]
  - Toxicity to various agents [Recovering/Resolving]
  - Respiratory failure [Recovering/Resolving]
  - Drug ineffective [Unknown]
  - Ventricular hypokinesia [Recovering/Resolving]
  - Ejection fraction decreased [Recovering/Resolving]
  - Sinus tachycardia [Recovering/Resolving]
  - Electrocardiogram QT prolonged [Recovering/Resolving]
  - Ventricular tachycardia [Recovering/Resolving]
  - Product administration error [Recovering/Resolving]
